FAERS Safety Report 4930590-1 (Version None)
Quarter: 2006Q1

REPORT INFORMATION
  Report Type: 
  Country: None (occurrence: None)
  Receive Date: 20060302
  Receipt Date: 20051003
  Transmission Date: 20060701
  Serious: Yes (Hospitalization)
  Sender: FDA-Public Use
  Company Number: US-MERCK-0510USA02651

PATIENT
  Age: 66 Year
  Sex: Female
  Weight: 98 kg

DRUGS (1)
  1. VIOXX [Suspect]
     Indication: ARTHRITIS
     Route: 048
     Dates: start: 20010328, end: 20041001

REACTIONS (29)
  - ABDOMINAL PAIN [None]
  - ABDOMINAL PAIN UPPER [None]
  - ARTHRALGIA [None]
  - ASTHENIA [None]
  - BRONCHITIS [None]
  - CARDIOVASCULAR DISORDER [None]
  - CHEST PAIN [None]
  - CONTUSION [None]
  - CORONARY ARTERY DISEASE [None]
  - DYSPNOEA [None]
  - FALL [None]
  - FATIGUE [None]
  - GASTROOESOPHAGEAL REFLUX DISEASE [None]
  - INFLAMMATION [None]
  - LIMB INJURY [None]
  - LOWER LIMB FRACTURE [None]
  - MUSCULOSKELETAL CHEST PAIN [None]
  - MYOCARDIAL INFARCTION [None]
  - NON-CARDIAC CHEST PAIN [None]
  - OEDEMA PERIPHERAL [None]
  - OESOPHAGEAL SPASM [None]
  - OSTEOPENIA [None]
  - PAIN IN EXTREMITY [None]
  - PHLEBITIS [None]
  - PNEUMONITIS [None]
  - RASH [None]
  - SPINAL OSTEOARTHRITIS [None]
  - THROMBOPHLEBITIS [None]
  - UPPER RESPIRATORY TRACT INFECTION [None]
